FAERS Safety Report 8425969-X (Version None)
Quarter: 2012Q2

REPORT INFORMATION
  Report Type: 
  Country: None (occurrence: None)
  Receive Date: 20120606
  Receipt Date: 20120606
  Transmission Date: 20120825
  Serious: No
  Sender: FDA-Public Use
  Company Number: None

PATIENT
  Age: 68 Year
  Sex: Female
  Weight: 76.2043 kg

DRUGS (8)
  1. MULTI-VITAMIN [Concomitant]
  2. INCIVEK [Concomitant]
  3. MELOXICAM [Concomitant]
  4. PEGASYS [Suspect]
     Indication: HEPATITIS C
     Dosage: 180 MCG SUBCUTANEOUSLY
     Route: 058
     Dates: start: 20120301
  5. RIBASPHERE [Concomitant]
  6. GABAPENTIN [Concomitant]
  7. MILK THISTLE [Concomitant]
  8. LEVOTHYROXINE SODIUM [Concomitant]

REACTIONS (1)
  - PLATELET COUNT DECREASED [None]
